FAERS Safety Report 13027792 (Version 2)
Quarter: 2017Q4

REPORT INFORMATION
  Report Type: Spontaneous
  Country: US (occurrence: US)
  Receive Date: 20161214
  Receipt Date: 20171130
  Transmission Date: 20180320
  Serious: No
  Sender: FDA-Public Use
  Company Number: US-DUSA PHARMACEUTICALS, INC.-1060785

PATIENT
  Age: 64 Year
  Sex: Female

DRUGS (3)
  1. ORACEA [Concomitant]
     Active Substance: DOXYCYCLINE
  2. SOOLANTRA [Concomitant]
     Active Substance: IVERMECTIN
     Dates: start: 20060101
  3. LEVULAN KERASTICK [Suspect]
     Active Substance: AMINOLEVULINIC ACID HYDROCHLORIDE
     Indication: ACTINIC KERATOSIS
     Route: 061
     Dates: start: 20160816, end: 20160816

REACTIONS (10)
  - Rosacea [Unknown]
  - Application site exfoliation [Unknown]
  - Application site erythema [Unknown]
  - Application site discolouration [Not Recovered/Not Resolved]
  - Skin lesion [Not Recovered/Not Resolved]
  - Application site photosensitivity reaction [Unknown]
  - Lip blister [Unknown]
  - Application site dryness [Unknown]
  - Application site pain [Not Recovered/Not Resolved]
  - Application site reaction [Unknown]

NARRATIVE: CASE EVENT DATE: 20160816
